FAERS Safety Report 7603473-6 (Version None)
Quarter: 2011Q3

REPORT INFORMATION
  Report Type: 
  Country: None (occurrence: None)
  Receive Date: 20110712
  Receipt Date: 20110629
  Transmission Date: 20111222
  Serious: Yes (Other)
  Sender: FDA-Public Use
  Company Number: US-AMGEN-USASP2011029549

PATIENT
  Age: 84 Year
  Sex: Female

DRUGS (1)
  1. ENBREL [Suspect]
     Indication: RHEUMATOID ARTHRITIS
     Dosage: 50 MG, QWK
     Dates: start: 20070623

REACTIONS (5)
  - VISUAL ACUITY REDUCED [None]
  - GLAUCOMA [None]
  - EYE OPERATION [None]
  - HAEMORRHAGE [None]
  - COAGULOPATHY [None]
